FAERS Safety Report 16425479 (Version 4)
Quarter: 2019Q4

REPORT INFORMATION
  Report Type: Spontaneous
  Country: US (occurrence: US)
  Receive Date: 20190613
  Receipt Date: 20191226
  Transmission Date: 20200122
  Serious: No
  Sender: FDA-Public Use
  Company Number: US-PFIZER INC-2019248122

PATIENT
  Age: 57 Year
  Sex: Female

DRUGS (1)
  1. INLYTA [Suspect]
     Active Substance: AXITINIB
     Indication: RENAL CANCER METASTATIC
     Dosage: 5 MG, 2X/DAY
     Route: 048
     Dates: start: 201905

REACTIONS (12)
  - Sedation [Unknown]
  - Somnolence [Unknown]
  - Muscle spasms [Unknown]
  - Increased appetite [Unknown]
  - Skin exfoliation [Unknown]
  - Pain in extremity [Unknown]
  - Skin discolouration [Unknown]
  - Headache [Unknown]
  - Fatigue [Unknown]
  - Diarrhoea [Unknown]
  - Skin fissures [Unknown]
  - Weight decreased [Unknown]

NARRATIVE: CASE EVENT DATE: 2019
